FAERS Safety Report 6584700-3 (Version None)
Quarter: 2010Q1

REPORT INFORMATION
  Report Type: 
  Country: None (occurrence: None)
  Receive Date: 20100204
  Receipt Date: 20100121
  Transmission Date: 20100710
  Serious: Yes (Life-Threatening)
  Sender: FDA-Public Use
  Company Number: 005901

PATIENT
  Sex: Male
  Weight: 70.5 kg

DRUGS (6)
  1. CERTOLIZUMAB PEGOL (CDP870) [Suspect]
     Indication: RHEUMATOID ARTHRITIS
     Dosage: 400 MG 1X/2 WEEKS SUBCUTANEOUS, 200 MG 1X/2  WEEKS SUBCUTANEOUS
     Route: 058
     Dates: start: 20051101, end: 20071211
  2. CERTOLIZUMAB PEGOL (CDP870) [Suspect]
     Indication: RHEUMATOID ARTHRITIS
     Dosage: 400 MG 1X/2 WEEKS SUBCUTANEOUS, 200 MG 1X/2  WEEKS SUBCUTANEOUS
     Route: 058
     Dates: start: 20071225, end: 20100121
  3. METHOTREXATE [Concomitant]
  4. FOLIC ACID [Concomitant]
  5. ISONIAZID [Concomitant]
  6. PYRIDOXIN [Concomitant]

REACTIONS (1)
  - MALIGNANT MELANOMA [None]
